FAERS Safety Report 23662889 (Version 1)
Quarter: 2024Q1

REPORT INFORMATION
  Report Type: Spontaneous
  Country: PL (occurrence: PL)
  Receive Date: 20240322
  Receipt Date: 20240322
  Transmission Date: 20240410
  Serious: Yes (Hospitalization, Other)
  Sender: FDA-Public Use
  Company Number: PL-SUN PHARMACEUTICAL INDUSTRIES LTD-2024R1-437538

PATIENT
  Sex: Female

DRUGS (3)
  1. METHYLDOPA [Suspect]
     Active Substance: METHYLDOPA
     Indication: Hypertension
     Dosage: 5X250 MG
     Route: 065
  2. METOPROLOL [Suspect]
     Active Substance: METOPROLOL
     Indication: Hypertension
     Dosage: 2X25 MG
     Route: 065
  3. ALFACALCIDOL [Suspect]
     Active Substance: ALFACALCIDOL
     Indication: Hypertension
     Dosage: UNK
     Route: 065

REACTIONS (4)
  - Premature delivery [Unknown]
  - Foetal growth restriction [Unknown]
  - Condition aggravated [Unknown]
  - Exposure during pregnancy [Unknown]
